FAERS Safety Report 7122564-X (Version None)
Quarter: 2010Q4

REPORT INFORMATION
  Report Type: 
  Country: None (occurrence: None)
  Receive Date: 20101112
  Receipt Date: 20101103
  Transmission Date: 20110411
  Serious: Yes (Other)
  Sender: FDA-Public Use
  Company Number: 2010SP058100

PATIENT
  Age: 74 Year
  Sex: Male
  Weight: 80 kg

DRUGS (3)
  1. REMERON [Suspect]
     Indication: PRODUCT USED FOR UNKNOWN INDICATION
     Dosage: 30 MG
  2. ARCOXIA [Suspect]
     Indication: PAIN
     Dosage: 60 MG;PO
     Route: 048
     Dates: start: 20100806, end: 20100809
  3. CLOZAPINE [Suspect]
     Indication: PRODUCT USED FOR UNKNOWN INDICATION
     Dosage: 25 MG

REACTIONS (3)
  - DRUG INTERACTION [None]
  - EXTRAPYRAMIDAL DISORDER [None]
  - PARKINSONIAN GAIT [None]
